FAERS Safety Report 5248113-9 (Version None)
Quarter: 2007Q1

REPORT INFORMATION
  Report Type: 
  Country: None (occurrence: None)
  Receive Date: 20070222
  Receipt Date: 20070207
  Transmission Date: 20070707
  Serious: Yes (Other)
  Sender: FDA-Public Use
  Company Number: A-US2007-14196

PATIENT
  Age: 19 Month
  Sex: Female

DRUGS (7)
  1. VENTAVIS [Suspect]
     Indication: PULMONARY HYPERTENSION
     Dosage: SEE IMAGE
     Route: 055
     Dates: start: 20061228
  2. DIAZEPAM [Concomitant]
  3. KETAMINE (KETAMINE HYDROCHLORIDE) [Concomitant]
  4. CLONIDINE [Concomitant]
  5. DIPIDOLOR (PIRITRAMIDE) [Concomitant]
  6. ACETAMINOPHEN [Concomitant]
  7. IBUPROFEN [Concomitant]

REACTIONS (6)
  - ALANINE AMINOTRANSFERASE INCREASED [None]
  - ASPARTATE AMINOTRANSFERASE INCREASED [None]
  - BLOOD ALKALINE PHOSPHATASE INCREASED [None]
  - BLOOD BILIRUBIN INCREASED [None]
  - GAMMA-GLUTAMYLTRANSFERASE INCREASED [None]
  - LIVER FUNCTION TEST ABNORMAL [None]
